FAERS Safety Report 15881103 (Version 1)
Quarter: 2019Q1

REPORT INFORMATION
  Report Type: Spontaneous
  Country: FR (occurrence: FR)
  Receive Date: 20190128
  Receipt Date: 20190128
  Transmission Date: 20190417
  Serious: Yes (Life-Threatening)
  Sender: FDA-Public Use
  Company Number: FR-PFIZER INC-2019034879

PATIENT
  Age: 67 Year
  Sex: Male
  Weight: 97 kg

DRUGS (19)
  1. DEXAMETHASON [DEXAMETHASONE] [Suspect]
     Active Substance: DEXAMETHASONE
     Dosage: 25 MG, 1X/DAY
     Route: 042
     Dates: start: 20181217, end: 20181217
  2. CEFAZOLINE PANPHARMA [Suspect]
     Active Substance: CEFAZOLIN SODIUM
     Dosage: 35 UG, 1X/DAY
     Route: 042
     Dates: start: 20181217, end: 20181217
  3. SUFENTANIL RENAUDIN [Suspect]
     Active Substance: SUFENTANIL CITRATE
     Dosage: 35 UG, 1X/DAY
     Route: 042
     Dates: start: 20181217, end: 20181217
  4. DEXAMETHASON [DEXAMETHASONE] [Suspect]
     Active Substance: DEXAMETHASONE
     Dosage: 2 G, 1X/DAY
     Route: 042
     Dates: start: 20181217, end: 20181217
  5. SUFENTANIL RENAUDIN [Suspect]
     Active Substance: SUFENTANIL CITRATE
     Dosage: 35 UG, 1X/DAY
     Route: 042
     Dates: start: 20181217, end: 20181217
  6. DEXAMETHASON [DEXAMETHASONE] [Suspect]
     Active Substance: DEXAMETHASONE
     Indication: GENERAL ANAESTHESIA
     Dosage: 8 MG, 1X/DAY
     Route: 042
     Dates: start: 20181217, end: 20181217
  7. DEXAMETHASON [DEXAMETHASONE] [Suspect]
     Active Substance: DEXAMETHASONE
     Dosage: 35 UG, 1X/DAY
     Route: 042
     Dates: start: 20181217, end: 20181217
  8. DEXAMETHASON [DEXAMETHASONE] [Suspect]
     Active Substance: DEXAMETHASONE
     Dosage: 25 MG, 1X/DAY
     Route: 042
     Dates: start: 20181217, end: 20181217
  9. KETAMINE PANPHARMA [Suspect]
     Active Substance: KETAMINE
     Dosage: 25 MG, 1X/DAY
     Route: 042
     Dates: start: 20181217, end: 20181217
  10. CEFAZOLINE PANPHARMA [Suspect]
     Active Substance: CEFAZOLIN SODIUM
     Indication: ANTIBIOTIC PROPHYLAXIS
     Dosage: 25 MG, 1X/DAY
     Route: 042
     Dates: start: 20181217, end: 20181217
  11. CEFAZOLINE PANPHARMA [Suspect]
     Active Substance: CEFAZOLIN SODIUM
     Dosage: 2 G, 1X/DAY
     Route: 042
     Dates: start: 20181217, end: 20181217
  12. ATRACURIUM BESILATE [Suspect]
     Active Substance: ATRACURIUM BESYLATE
     Indication: GENERAL ANAESTHESIA
     Dosage: 40 MG, 1X/DAY
     Route: 042
     Dates: start: 20181217, end: 20181217
  13. KETAMINE PANPHARMA [Suspect]
     Active Substance: KETAMINE
     Dosage: 25 MG, 1X/DAY
     Route: 042
     Dates: start: 20181217, end: 20181217
  14. CEFAZOLINE PANPHARMA [Suspect]
     Active Substance: CEFAZOLIN SODIUM
     Dosage: 25 MG, 1X/DAY
     Route: 042
     Dates: start: 20181217, end: 20181217
  15. CEFAZOLINE PANPHARMA [Suspect]
     Active Substance: CEFAZOLIN SODIUM
     Dosage: 2 G, 1X/DAY
     Route: 042
     Dates: start: 20181217, end: 20181217
  16. KETAMINE PANPHARMA [Suspect]
     Active Substance: KETAMINE
     Indication: GENERAL ANAESTHESIA
     Dosage: 25 MG, 1X/DAY
     Route: 042
     Dates: start: 20181217, end: 20181217
  17. KETAMINE PANPHARMA [Suspect]
     Active Substance: KETAMINE
     Dosage: 35 UG, 1X/DAY
     Route: 042
     Dates: start: 20181217, end: 20181217
  18. SUFENTANIL RENAUDIN [Suspect]
     Active Substance: SUFENTANIL CITRATE
     Indication: GENERAL ANAESTHESIA
     Dosage: 25 MG, 1X/DAY
     Route: 042
     Dates: start: 20181217, end: 20181217
  19. PROPOFOL LIPURO [Suspect]
     Active Substance: PROPOFOL
     Indication: GENERAL ANAESTHESIA
     Dosage: 300 MG, 1X/DAY
     Route: 042
     Dates: start: 20181217, end: 20181217

REACTIONS (4)
  - Tachycardia [Recovered/Resolved]
  - Circulatory collapse [Recovered/Resolved]
  - Erythema [Recovered/Resolved]
  - Bradycardia [Recovered/Resolved]

NARRATIVE: CASE EVENT DATE: 20181217
